FAERS Safety Report 6106776-X (Version None)
Quarter: 2009Q1

REPORT INFORMATION
  Report Type: 
  Country: None (occurrence: None)
  Receive Date: 20090304
  Receipt Date: 20090220
  Transmission Date: 20090719
  Serious: Yes (Other)
  Sender: FDA-Public Use
  Company Number: CIP09000465

PATIENT
  Age: 72 Year
  Sex: Female
  Weight: 49 kg

DRUGS (7)
  1. ACTONEL [Suspect]
     Indication: RHEUMATOID ARTHRITIS
     Dosage: 35 MG ONCE WEEKLY ORAL
     Route: 048
     Dates: start: 20090201, end: 20090201
  2. CAPTOPRIL [Concomitant]
  3. HYDROCHLOROTHIAZIDE [Concomitant]
  4. LEXOTAN (BROMAZEPAM) [Concomitant]
  5. LISADOR (ADIPHENINE, METAMIZOLE SODIUM, PROMETHAZINE) [Concomitant]
  6. METICORTEN TAB [Concomitant]
  7. NIMESULIDE (NIMESULIDE) [Concomitant]

REACTIONS (4)
  - ASTHENIA [None]
  - LAZINESS [None]
  - MYALGIA [None]
  - NAUSEA [None]
